FAERS Safety Report 15689955 (Version 2)
Quarter: 2019Q1

REPORT INFORMATION
  Report Type: Spontaneous
  Country: CA (occurrence: CA)
  Receive Date: 20181205
  Receipt Date: 20190121
  Transmission Date: 20190417
  Serious: Yes (Other)
  Sender: FDA-Public Use
  Company Number: CA-CELLTRION INC.-2018CA024247

PATIENT

DRUGS (16)
  1. PALAFER [Concomitant]
     Active Substance: FERROUS FUMARATE
  2. RANITIDINE. [Concomitant]
     Active Substance: RANITIDINE
  3. SIMVASTATIN. [Concomitant]
     Active Substance: SIMVASTATIN
  4. DIAMICRON [Concomitant]
     Active Substance: GLICLAZIDE
  5. INFLIXIMAB PFIZER (UNKNOWN) [Suspect]
     Active Substance: INFLIXIMAB
     Indication: COLITIS ULCERATIVE
     Dosage: UNK
     Route: 042
  6. POTASSIUM CHLORIDE;RIBOFLAVIN SODIUM PHOSPHATE [Suspect]
     Active Substance: POTASSIUM CHLORIDE\RIBOFLAVIN 5^-PHOSPHATE SODIUM
     Dosage: 8 MEQ, 1X/DAY
     Route: 042
  7. JANUVIA [Concomitant]
     Active Substance: SITAGLIPTIN PHOSPHATE
  8. ALLOPURINOL. [Concomitant]
     Active Substance: ALLOPURINOL
  9. METOPROLOL. [Concomitant]
     Active Substance: METOPROLOL
  10. VITAMIIN C [ASCORBIC ACID] [Concomitant]
  11. AMLODIPINE BESILATE [Suspect]
     Active Substance: AMLODIPINE BESYLATE
     Dosage: 10 MG, 1X/DAY
     Route: 065
  12. ECHINACEA [Concomitant]
     Active Substance: ECHINACEA, UNSPECIFIED
  13. MEZAVANT [Suspect]
     Active Substance: MESALAMINE
     Dosage: 1.2 G, 1X/DAY
     Route: 048
  14. ASA [Suspect]
     Active Substance: ASPIRIN
     Dosage: 81 MG, 1X/DAY
     Route: 065
  15. ASACOL [Suspect]
     Active Substance: MESALAMINE
     Dosage: UNK
     Route: 065
  16. CITALOPRAM [Concomitant]
     Active Substance: CITALOPRAM HYDROBROMIDE

REACTIONS (1)
  - Thrombosis [Unknown]
